FAERS Safety Report 7974801-7 (Version None)
Quarter: 2011Q4

REPORT INFORMATION
  Report Type: 
  Country: None (occurrence: None)
  Receive Date: 20111213
  Receipt Date: 20111212
  Transmission Date: 20120403
  Serious: Yes (Other)
  Sender: FDA-Public Use
  Company Number: US-ROCHE-761241

PATIENT
  Sex: Male
  Weight: 87.1 kg

DRUGS (5)
  1. ACCUTANE [Suspect]
     Route: 048
     Dates: start: 20010117, end: 20010406
  2. ACCUTANE [Suspect]
     Indication: ACNE
  3. ACETAMINOPHEN [Concomitant]
  4. PANMIST-S [Concomitant]
     Route: 048
  5. AMOXICILLIN [Concomitant]

REACTIONS (5)
  - DEPRESSION [None]
  - MENTAL DISORDER [None]
  - SUICIDAL IDEATION [None]
  - COLITIS ULCERATIVE [None]
  - INFLAMMATORY BOWEL DISEASE [None]
